FAERS Safety Report 8622075-6 (Version None)
Quarter: 2012Q3

REPORT INFORMATION
  Report Type: 
  Country: None (occurrence: None)
  Receive Date: 20120823
  Receipt Date: 20120823
  Transmission Date: 20120928
  Serious: No
  Sender: FDA-Public Use
  Company Number: None

PATIENT
  Sex: Male

DRUGS (2)
  1. BUPROPION HYDROBROMIDE [Concomitant]
  2. OXCARBAZEPINE [Suspect]
     Indication: CONVULSION
     Dosage: 1 TABLET TWICE DAILY
     Dates: start: 20111229, end: 20120128

REACTIONS (3)
  - MEDICATION RESIDUE [None]
  - HYPERSOMNIA [None]
  - OVERDOSE [None]
